FAERS Safety Report 19933931 (Version 1)
Quarter: 2021Q4

REPORT INFORMATION
  Report Type: Spontaneous
  Country: US (occurrence: US)
  Receive Date: 20211008
  Receipt Date: 20211008
  Transmission Date: 20220303
  Serious: Yes (Life-Threatening, Hospitalization, Other)
  Sender: FDA-Public Use
  Company Number: US-BOEHRINGERINGELHEIM-2021-BI-131454

PATIENT
  Age: 76 Year
  Sex: Male

DRUGS (1)
  1. SPIRIVA [Suspect]
     Active Substance: TIOTROPIUM BROMIDE MONOHYDRATE
     Indication: Chronic obstructive pulmonary disease
     Dosage: 18 MCG, ONCE DAILY
     Route: 055
     Dates: start: 2016

REACTIONS (4)
  - Cardiac arrest [Recovered/Resolved]
  - Incorrect route of product administration [Unknown]
  - Gastrointestinal haemorrhage [Recovered/Resolved]
  - Pneumonia [Not Recovered/Not Resolved]

NARRATIVE: CASE EVENT DATE: 20210701
